FAERS Safety Report 24053502 (Version 1)
Quarter: 2024Q3

REPORT INFORMATION
  Report Type: Spontaneous
  Country: US (occurrence: US)
  Receive Date: 20240705
  Receipt Date: 20240705
  Transmission Date: 20241017
  Serious: Yes (Life-Threatening, Hospitalization, Other)
  Sender: HIKMA
  Company Number: US-MLMSERVICE-20240613-PI100165-00140-1

PATIENT
  Age: 59 Year
  Sex: Male

DRUGS (2)
  1. CYTARABINE [Suspect]
     Active Substance: CYTARABINE
     Indication: Central nervous system lymphoma
     Dosage: 3 DAYS OF HIGH-DOSE
     Route: 065
  2. ETOPOSIDE [Suspect]
     Active Substance: ETOPOSIDE
     Indication: Central nervous system lymphoma
     Dosage: 3 DAYS OF HIGH-DOSE
     Route: 065

REACTIONS (6)
  - Septic shock [Unknown]
  - Gastroenteritis viral [Unknown]
  - Neutropenic sepsis [Unknown]
  - Respiratory failure [Unknown]
  - Cardiac arrest [Unknown]
  - Megacolon [Unknown]
